FAERS Safety Report 8158019-3 (Version None)
Quarter: 2012Q1

REPORT INFORMATION
  Report Type: 
  Country: None (occurrence: None)
  Receive Date: 20120222
  Receipt Date: 20120214
  Transmission Date: 20120608
  Serious: Yes (Other)
  Sender: FDA-Public Use
  Company Number: PHEH2011US06773

PATIENT
  Sex: Female
  Weight: 69.388 kg

DRUGS (8)
  1. ANTIBIOTICS [Concomitant]
     Dosage: UNK UKN, UNK
  2. HYDROCHLOROTHIAZIDE [Concomitant]
     Indication: HYPERTENSION
     Dosage: 25 MG, UNK
     Route: 048
  3. SYNTHROID [Concomitant]
     Indication: HYPOTHYROIDISM
     Dosage: 112 UG, UNK
     Route: 048
  4. FIORICET [Concomitant]
     Dosage: UNK UKN, PRN
  5. GILENYA [Suspect]
     Indication: MULTIPLE SCLEROSIS
     Dosage: 0.5 MG, DAILY
     Route: 048
     Dates: start: 20110912, end: 20111020
  6. GILENYA [Suspect]
     Dosage: 0.5 MG, DAILY
     Route: 048
     Dates: start: 20111010
  7. GILENYA [Suspect]
     Dosage: 0.5 MG, QD
     Route: 048
     Dates: start: 20111010
  8. PROPRANOLOL [Concomitant]
     Indication: HYPERTENSION
     Dosage: 60 MG, UNK
     Route: 048

REACTIONS (6)
  - OROPHARYNGEAL PAIN [None]
  - CHEST DISCOMFORT [None]
  - DYSPNOEA [None]
  - FATIGUE [None]
  - DIZZINESS [None]
  - PRESYNCOPE [None]
